FAERS Safety Report 16274580 (Version 1)
Quarter: 2019Q2

REPORT INFORMATION
  Report Type: Spontaneous
  Country: US (occurrence: US)
  Receive Date: 20190506
  Receipt Date: 20190506
  Transmission Date: 20190711
  Serious: No
  Sender: FDA-Public Use
  Company Number: US-GLAXOSMITHKLINE-US2019075153

PATIENT
  Age: 8 Year
  Sex: Male

DRUGS (2)
  1. VENTOLIN HFA [Suspect]
     Active Substance: ALBUTEROL SULFATE
     Indication: PNEUMOTHORAX
     Dosage: UNK
     Route: 055
     Dates: start: 20190425
  2. VENTOLIN HFA [Suspect]
     Active Substance: ALBUTEROL SULFATE
     Indication: COUGH

REACTIONS (3)
  - Wrong technique in device usage process [Not Recovered/Not Resolved]
  - Accidental underdose [Unknown]
  - Overdose [Unknown]

NARRATIVE: CASE EVENT DATE: 20190425
